FAERS Safety Report 21604460 (Version 1)
Quarter: 2022Q4

REPORT INFORMATION
  Report Type: Spontaneous
  Country: US (occurrence: None)
  Receive Date: 20221116
  Receipt Date: 20221116
  Transmission Date: 20230113
  Serious: No
  Sender: FDA-Public Use
  Company Number: 2022A361870

PATIENT
  Sex: Female
  Weight: 63.5 kg

DRUGS (1)
  1. SYMBICORT [Suspect]
     Active Substance: BUDESONIDE\FORMOTEROL FUMARATE DIHYDRATE
     Indication: COVID-19
     Dosage: 160-4.5 2 PUFFS TWICE E A DAY
     Route: 055

REACTIONS (5)
  - Pulmonary congestion [Unknown]
  - Cough [Unknown]
  - Dyspnoea [Unknown]
  - Device malfunction [Unknown]
  - Device use issue [Unknown]
